FAERS Safety Report 8292224-0 (Version None)
Quarter: 2012Q2

REPORT INFORMATION
  Report Type: 
  Country: None (occurrence: None)
  Receive Date: 20120413
  Receipt Date: 20120404
  Transmission Date: 20120825
  Serious: Yes (Hospitalization)
  Sender: FDA-Public Use
  Company Number: 2012SP018185

PATIENT
  Age: 56 Year
  Sex: Male
  Weight: 67 kg

DRUGS (6)
  1. PEG-INTRON [Suspect]
     Indication: HEPATITIS C
     Dosage: 1.5 MCG/KG;QW;SC
     Route: 058
     Dates: start: 20120314
  2. URSO 250 [Concomitant]
  3. TELAVIC (TELAPREVIR) (INVESTIGATIONAL DRUG) [Suspect]
     Indication: HEPATITIS C
     Dosage: 2250 MG;QD;PO ; 250 MG;TID;PO ; 500 MG;TID;PO
     Route: 048
     Dates: start: 20120314, end: 20120317
  4. TELAVIC (TELAPREVIR) (INVESTIGATIONAL DRUG) [Suspect]
     Indication: HEPATITIS C
     Dosage: 2250 MG;QD;PO ; 250 MG;TID;PO ; 500 MG;TID;PO
     Route: 048
     Dates: start: 20120323
  5. TELAVIC (TELAPREVIR) (INVESTIGATIONAL DRUG) [Suspect]
     Indication: HEPATITIS C
     Dosage: 2250 MG;QD;PO ; 250 MG;TID;PO ; 500 MG;TID;PO
     Route: 048
     Dates: start: 20120321
  6. REBETOL [Suspect]
     Indication: HEPATITIS C
     Dosage: 800 MG;QD;PO
     Route: 048
     Dates: start: 20120314

REACTIONS (2)
  - ERYTHEMA [None]
  - CONJUNCTIVAL HYPERAEMIA [None]
